FAERS Safety Report 8924884 (Version 2)
Quarter: 2012Q4

REPORT INFORMATION
  Report Type: 
  Country: US (occurrence: US)
  Receive Date: 20121126
  Receipt Date: 20121217
  Transmission Date: 20130627
  Serious: Yes (Life-Threatening, Hospitalization)
  Sender: FDA-Public Use
  Company Number: US-PFIZER INC-2012293021

PATIENT
  Age: 46 Year
  Sex: Male
  Weight: 81.96 kg

DRUGS (6)
  1. AXITINIB [Suspect]
     Indication: TONGUE NEOPLASM
     Dosage: 5 mg, 2x/day
     Route: 048
     Dates: start: 20121114, end: 20121116
  2. DEXAMETHASONE [Concomitant]
     Dosage: 1 mg, UNK
  3. LORAZEPAM [Concomitant]
     Dosage: 1 mg, UNK
  4. OXYCODONE [Concomitant]
     Dosage: 20 mg, UNK
  5. POLYETHYLENE GLYCOL [Concomitant]
     Dosage: 3550
  6. FENTANYL [Concomitant]
     Dosage: 75 mcg/hr

REACTIONS (1)
  - Pneumonia [Recovered/Resolved]
